FAERS Safety Report 9225086 (Version 1)
Quarter: 2013Q1

REPORT INFORMATION
  Report Type: Spontaneous
  Country: US (occurrence: None)
  Receive Date: 20120912
  Receipt Date: 20120912
  Transmission Date: 20140127
  Serious: No
  Sender: FDA-Public Use
  Company Number: 2012SP023199

PATIENT
  Age: 61 Year
  Sex: Female

DRUGS (3)
  1. VICTRELIS [Suspect]
     Indication: HEPATITIS C
     Route: 048
     Dates: start: 20120313
  2. RIBAVIRIN [Suspect]
     Indication: PRODUCT USED FOR UNKNOWN INDICATION
     Dates: start: 20120214
  3. PEGASYS [Suspect]
     Dates: start: 20120214

REACTIONS (5)
  - Gastrooesophageal reflux disease [None]
  - Dysgeusia [None]
  - Nausea [None]
  - Anaemia [None]
  - Drug dose omission [None]
